FAERS Safety Report 5063803-9 (Version None)
Quarter: 2006Q3

REPORT INFORMATION
  Report Type: 
  Country: None (occurrence: None)
  Receive Date: 20060703
  Receipt Date: 20060417
  Transmission Date: 20061208
  Serious: No
  Sender: FDA-Public Use
  Company Number: 2006S1003585

PATIENT
  Age: 56 Year
  Sex: Female
  Weight: 63.5036 kg

DRUGS (19)
  1. CLOZAPINE [Suspect]
     Indication: PSYCHOTIC DISORDER
     Dosage: SEE IMAGE
     Route: 048
     Dates: start: 20040430
  2. CLOZAPINE [Suspect]
     Indication: SCHIZOAFFECTIVE DISORDER
     Dosage: SEE IMAGE
     Route: 048
     Dates: start: 20040430
  3. CLOZAPINE [Suspect]
  4. WELLBUTRIN SR [Suspect]
     Dosage: SEE IMAGE
     Route: 048
  5. BUPROPION HCL [Concomitant]
  6. TRAZODONE HCL [Concomitant]
  7. CLONAZEPAM [Concomitant]
  8. ATORVASTATIN CALCIUM [Concomitant]
  9. ESOMEPRAZOLE MAGNESIUM [Concomitant]
  10. SALBUTAMOL SULFATE [Concomitant]
  11. PSEUDOEPHEDRINE HYDROCHLORIDE/FEXOFENADINE [Concomitant]
  12. IPRATROPIUM BROMIDE/SALBUTAMOL SULFATE [Concomitant]
  13. FLUTICASONE PROPIONATE [Concomitant]
  14. IBRANDRONATE SODIUM [Concomitant]
  15. CLINDAMYCIN [Concomitant]
  16. OXYCODONE HCL [Concomitant]
  17. CEPHALEXIN [Concomitant]
  18. FISH OIL [Concomitant]
  19. DOCUSATE SODIUM [Concomitant]

REACTIONS (2)
  - GRANULOCYTOPENIA [None]
  - WHITE BLOOD CELL COUNT DECREASED [None]
